FAERS Safety Report 7508106-5 (Version None)
Quarter: 2011Q2

REPORT INFORMATION
  Report Type: 
  Country: None (occurrence: None)
  Receive Date: 20110527
  Receipt Date: 20110516
  Transmission Date: 20111010
  Serious: Yes (Hospitalization, Other)
  Sender: FDA-Public Use
  Company Number: US-BAYER-2011-009452

PATIENT
  Age: 51 Year
  Sex: Female

DRUGS (3)
  1. INTERFERON BETA-1B [Suspect]
     Indication: RELAPSING-REMITTING MULTIPLE SCLEROSIS
     Dosage: UNK
     Route: 058
     Dates: start: 19940104, end: 20101101
  2. MORPHINE [Concomitant]
     Indication: PAIN
     Dosage: UNK
  3. INTERFERON BETA-1B [Suspect]
     Dosage: 8 MIU, EVERY THREE DAYS
     Route: 058
     Dates: start: 20110215

REACTIONS (7)
  - GASTROINTESTINAL DISORDER [None]
  - PROCEDURAL PAIN [None]
  - DYSPHAGIA [None]
  - PROCEDURAL COMPLICATION [None]
  - GASTRIC BYPASS [None]
  - BLOOD COUNT ABNORMAL [None]
  - OESOPHAGEAL DISORDER [None]
